FAERS Safety Report 10197279 (Version 1)
Quarter: 2014Q2

REPORT INFORMATION
  Report Type: Spontaneous
  Country: US (occurrence: None)
  Receive Date: 20140523
  Receipt Date: 20140523
  Transmission Date: 20141212
  Serious: No
  Sender: FDA-Public Use
  Company Number: None

PATIENT
  Age: 43 Year
  Sex: Female
  Weight: 90.72 kg

DRUGS (1)
  1. MINIVELLE [Suspect]
     Indication: HORMONE REPLACEMENT THERAPY
     Dosage: 1 PATCH TWICE A WEEK, TWICE A WEEK, APPLIED AS MEDICATED PATCH TO SKIN
     Dates: start: 20140313, end: 20140521

REACTIONS (4)
  - Abdominal pain upper [None]
  - Diarrhoea [None]
  - Gastrointestinal inflammation [None]
  - Malaise [None]
